FAERS Safety Report 16730696 (Version 2)
Quarter: 2019Q3

REPORT INFORMATION
  Report Type: Spontaneous
  Country: US (occurrence: US)
  Receive Date: 20190822
  Receipt Date: 20190902
  Transmission Date: 20191005
  Serious: No
  Sender: FDA-Public Use
  Company Number: US-ALEXION PHARMACEUTICALS INC.-A201912600

PATIENT
  Sex: Male

DRUGS (1)
  1. STRENSIQ [Suspect]
     Active Substance: ASFOTASE ALFA
     Indication: HYPOPHOSPHATASIA
     Dosage: 32 MG, TIW
     Route: 058
     Dates: start: 20190202

REACTIONS (3)
  - Injection site discolouration [Recovering/Resolving]
  - Injection site erythema [Recovering/Resolving]
  - Blood creatinine increased [Recovered/Resolved]
